FAERS Safety Report 17436049 (Version 1)
Quarter: 2020Q1

REPORT INFORMATION
  Report Type: Report from Study
  Country: GB (occurrence: GB)
  Receive Date: 20200219
  Receipt Date: 20200219
  Transmission Date: 20200409
  Serious: Yes (Death)
  Sender: FDA-Public Use
  Company Number: NVSC2020GB045864

PATIENT
  Sex: Male

DRUGS (1)
  1. COSENTYX [Suspect]
     Active Substance: SECUKINUMAB
     Indication: PSORIASIS
     Dosage: 300 MG, ON WEEKS 0, 1, 2, 3, 4 FOLLOWED BY ONCE MONTHLY THEREAFTER AS DIRECTED
     Route: 058
     Dates: start: 20190109

REACTIONS (1)
  - Death [Fatal]
